FAERS Safety Report 9372112 (Version 1)
Quarter: 2013Q2

REPORT INFORMATION
  Report Type: Report from Study
  Country: US (occurrence: US)
  Receive Date: 20130627
  Receipt Date: 20130627
  Transmission Date: 20140414
  Serious: Yes (Other)
  Sender: FDA-Public Use
  Company Number: US-MYLANLABS-2012S1015086

PATIENT
  Age: 54 Year
  Sex: Female

DRUGS (9)
  1. CLOZAPINE TABLETS [Suspect]
     Indication: SCHIZOPHRENIA
     Route: 048
     Dates: start: 20121221, end: 20130131
  2. CLOZAPINE TABLETS [Suspect]
     Indication: SCHIZOPHRENIA
     Route: 048
     Dates: end: 20121205
  3. FLUOXETINE [Concomitant]
  4. IBUPROFEN [Concomitant]
     Indication: PAIN
     Dosage: 1-2 TABLETS EVERY 6 HOURS AS NEEDED FOR LEFT THIGH PAIN
  5. ASPIRIN [Concomitant]
  6. VITAMIN D [Concomitant]
  7. POTASSIUM CHLORIDE [Concomitant]
  8. OMEPRAZOLE [Concomitant]
  9. SIMVASTATIN [Concomitant]

REACTIONS (2)
  - Granulocytopenia [Recovered/Resolved]
  - White blood cell count decreased [Recovered/Resolved]
